FAERS Safety Report 4698746-3 (Version None)
Quarter: 2005Q2

REPORT INFORMATION
  Report Type: 
  Country: None (occurrence: None)
  Receive Date: 20050621
  Receipt Date: 20050228
  Transmission Date: 20051028
  Serious: Yes (Other)
  Sender: FDA-Public Use
  Company Number: 2004105514

PATIENT
  Age: 65 Year
  Sex: Male
  Weight: 78.0187 kg

DRUGS (16)
  1. VFEND [Suspect]
     Indication: BRONCHOPULMONARY ASPERGILLOSIS
     Dosage: 500 MG (250 MG,2 IN 1 D), ORAL
     Route: 048
     Dates: start: 20040301
  2. MONTELUKAST SODIUM (MONTELUKAST SODIUM) [Concomitant]
  3. ALBUTEROL SULFATE HFA [Concomitant]
  4. LEVOSALBUTAMOL (LEVOSALBUTAMOL) [Concomitant]
  5. BUDESONIDE [Concomitant]
  6. SALMETEROL XINAFOATE (SALMETEROL XINAFOATE) [Concomitant]
  7. CALAMINE/CAMPHOR/DIPHENHYDRAMINE (CALAMINE, CAMPHOR, DIPHENHYDRAMINE) [Concomitant]
  8. OMEPRAZOLE [Concomitant]
  9. FINASTERIDE [Concomitant]
  10. ALLOPURINOL [Concomitant]
  11. MELOXICAM [Concomitant]
  12. CENTRUM SILVER (ASCORBIC ACID, CALCIUM, MINERALS NOS, RETINOL, TOCOPHE [Concomitant]
  13. DIMETICONE, ACTIVATED (SIMETICONE) [Concomitant]
  14. CASPOFUNGIN (CASPOFUNGIN) [Concomitant]
  15. BUSPIRONE HCL [Concomitant]
  16. OMEPRAZOLE [Concomitant]

REACTIONS (1)
  - COELIAC DISEASE [None]
